FAERS Safety Report 10969394 (Version 1)
Quarter: 2015Q1

REPORT INFORMATION
  Report Type: Spontaneous
  Country: US (occurrence: None)
  Receive Date: 20150226
  Receipt Date: 20150226
  Transmission Date: 20150721
  Serious: No
  Sender: FDA-Public Use
  Company Number: TPA2010A00803

PATIENT
  Sex: 0

DRUGS (3)
  1. UNSPECIFIED ANTI-INFLAMMATORY [Concomitant]
     Active Substance: UNSPECIFIED INGREDIENT
  2. COLCHINE [Concomitant]
     Active Substance: COLCHICINE
  3. ULORIC [Suspect]
     Active Substance: FEBUXOSTAT
     Indication: PRODUCT USED FOR UNKNOWN INDICATION

REACTIONS (1)
  - Gout [None]
